FAERS Safety Report 25678622 (Version 2)
Quarter: 2025Q4

REPORT INFORMATION
  Report Type: Report from Study
  Country: US (occurrence: US)
  Receive Date: 20250814
  Receipt Date: 20251006
  Transmission Date: 20260118
  Serious: Yes (Death, Hospitalization)
  Sender: BIOGEN
  Company Number: US-BIOGEN-2025BI01320240

PATIENT
  Age: 12 Year
  Sex: Female

DRUGS (2)
  1. SPINRAZA [Suspect]
     Active Substance: NUSINERSEN
     Indication: Spinal muscular atrophy
     Dosage: INJECT 5 ML (12 MG) INTRATHECALLY EVERY 4 (FOUR) MONTHS
     Route: 050
     Dates: start: 20181003, end: 20250418
  2. ZOMETA [Concomitant]
     Active Substance: ZOLEDRONIC ACID
     Indication: Product used for unknown indication
     Route: 050

REACTIONS (2)
  - Cardiac arrest [Fatal]
  - Bronchial secretion retention [Unknown]

NARRATIVE: CASE EVENT DATE: 20250801
